FAERS Safety Report 9169961 (Version 1)
Quarter: 2013Q1

REPORT INFORMATION
  Report Type: Spontaneous
  Country: US (occurrence: None)
  Receive Date: 20130314
  Receipt Date: 20130314
  Transmission Date: 20140127
  Serious: Yes (Hospitalization)
  Sender: FDA-Public Use
  Company Number: None

PATIENT
  Age: 54 Year
  Sex: Female
  Weight: 145.15 kg

DRUGS (1)
  1. JANUMET [Suspect]
     Indication: TYPE 2 DIABETES MELLITUS
     Route: 048
     Dates: start: 20090415, end: 20130312

REACTIONS (6)
  - Vomiting [None]
  - Diarrhoea [None]
  - Gastroenteritis viral [None]
  - Cellulitis [None]
  - Pancreatitis [None]
  - Cholecystectomy [None]
